FAERS Safety Report 5589378-3 (Version None)
Quarter: 2008Q1

REPORT INFORMATION
  Report Type: 
  Country: None (occurrence: None)
  Receive Date: 20080109
  Receipt Date: 20071221
  Transmission Date: 20080703
  Serious: Yes (Hospitalization)
  Sender: FDA-Public Use
  Company Number: ENTC2007-0381

PATIENT
  Age: 72 Year
  Sex: Female

DRUGS (1)
  1. STALEVO 100 [Suspect]
     Indication: PARKINSON'S DISEASE
     Dosage: TWICE DAILY
     Route: 048
     Dates: start: 20070621, end: 20070719

REACTIONS (4)
  - AGGRESSION [None]
  - DELIRIUM [None]
  - DISORIENTATION [None]
  - PSYCHOMOTOR HYPERACTIVITY [None]
